FAERS Safety Report 9632720 (Version 4)
Quarter: 2014Q1

REPORT INFORMATION
  Report Type: Report from Study
  Country: US (occurrence: US)
  Receive Date: 20131018
  Receipt Date: 20140121
  Transmission Date: 20141002
  Serious: Yes (Hospitalization)
  Sender: FDA-Public Use
  Company Number: US-US-EMD SERONO, INC.-7243816

PATIENT
  Age: 52 Year
  Sex: Female

DRUGS (3)
  1. REBIF [Suspect]
     Indication: PRODUCT USED FOR UNKNOWN INDICATION
     Route: 058
     Dates: start: 20130409
  2. REBIF [Suspect]
     Route: 058
  3. COUMADIN                           /00014802/ [Concomitant]
     Indication: ANTIPHOSPHOLIPID SYNDROME

REACTIONS (7)
  - Staphylococcal infection [Recovering/Resolving]
  - Urinary tract infection [Recovering/Resolving]
  - Cyst [Not Recovered/Not Resolved]
  - Thrombophlebitis superficial [Recovered/Resolved]
  - Dysphagia [Unknown]
  - Hepatic enzyme increased [Not Recovered/Not Resolved]
  - Headache [Recovered/Resolved]
